FAERS Safety Report 5586367-X (Version None)
Quarter: 2008Q1

REPORT INFORMATION
  Report Type: 
  Country: None (occurrence: None)
  Receive Date: 20080110
  Receipt Date: 20080110
  Transmission Date: 20080703
  Serious: Yes (Hospitalization)
  Sender: FDA-Public Use
  Company Number: PHHO2005US11949

PATIENT
  Age: 77 Year
  Sex: Female
  Weight: 63 kg

DRUGS (4)
  1. ZOLEDRONIC ACID [Suspect]
     Indication: OSTEOPOROTIC FRACTURE
     Dosage: DOUBLE-BLIND
     Route: 042
     Dates: start: 20020719
  2. ZOLEDRONIC ACID [Suspect]
     Dosage: 5MG, ONCE YEARLY
  3. VITAMIN D [Concomitant]
     Indication: OSTEOPOROTIC FRACTURE
     Route: 048
  4. CALCIUM GLUCONATE [Concomitant]
     Indication: OSTEOPOROTIC FRACTURE
     Route: 048

REACTIONS (6)
  - CONCOMITANT DISEASE PROGRESSION [None]
  - LEG AMPUTATION [None]
  - NEUROPATHIC ARTHROPATHY [None]
  - OSTEOMYELITIS [None]
  - PROSTHESIS IMPLANTATION [None]
  - SKIN ULCER [None]
